FAERS Safety Report 4355699-5 (Version None)
Quarter: 2004Q2

REPORT INFORMATION
  Report Type: 
  Country: None (occurrence: None)
  Receive Date: 20040507
  Receipt Date: 20040421
  Transmission Date: 20050107
  Serious: Yes (Hospitalization)
  Sender: FDA-Public Use
  Company Number: M04-341-116

PATIENT
  Age: 76 Year
  Sex: Female
  Weight: 61 kg

DRUGS (1)
  1. VELCADE [Suspect]
     Indication: MULTIPLE MYELOMA
     Dosage: 2.1 MG BIW: INTRAVENOUS BOLUS
     Route: 040
     Dates: start: 20040309, end: 20040402

REACTIONS (24)
  - ANAEMIA [None]
  - ANION GAP INCREASED [None]
  - ASTHENIA [None]
  - ATELECTASIS [None]
  - BACK PAIN [None]
  - BRADYCARDIA [None]
  - CARDIAC FAILURE CONGESTIVE [None]
  - CARDIOMEGALY [None]
  - COMPRESSION FRACTURE [None]
  - DRUG TOLERANCE DECREASED [None]
  - ELECTROCARDIOGRAM T WAVE INVERSION [None]
  - FATIGUE [None]
  - HERPES SIMPLEX [None]
  - HYPONATRAEMIA [None]
  - HYPOXIA [None]
  - METABOLIC ACIDOSIS [None]
  - MUCOSAL INFLAMMATION [None]
  - NAUSEA [None]
  - POOR VENOUS ACCESS [None]
  - PULMONARY EMBOLISM [None]
  - PULMONARY HYPERTENSION [None]
  - QRS AXIS ABNORMAL [None]
  - RESPIRATORY RATE INCREASED [None]
  - TACHYCARDIA [None]
